FAERS Safety Report 6144873-3 (Version None)
Quarter: 2009Q2

REPORT INFORMATION
  Report Type: 
  Country: None (occurrence: None)
  Receive Date: 20090406
  Receipt Date: 20090325
  Transmission Date: 20091009
  Serious: Yes (Other)
  Sender: FDA-Public Use
  Company Number: PHHY2009PL08947

PATIENT
  Age: 47 Year
  Sex: Female
  Weight: 79 kg

DRUGS (4)
  1. SANDIMMUNE [Suspect]
     Indication: RHEUMATOID ARTHRITIS
     Dosage: 200 MG/DAY
     Dates: start: 20090107, end: 20090301
  2. METYPRED [Concomitant]
     Dosage: UNK
     Route: 048
     Dates: start: 20050401
  3. CONTROLOC [Concomitant]
     Dosage: UNK
     Route: 048
     Dates: start: 20071001
  4. VITRUM CALCIUM + VIT D3 [Concomitant]
     Dosage: UNK
     Route: 048
     Dates: start: 20090101

REACTIONS (13)
  - ABDOMINAL PAIN [None]
  - BLOOD PRESSURE DECREASED [None]
  - BLOOD PRESSURE INCREASED [None]
  - BURNING SENSATION [None]
  - CHEST PAIN [None]
  - FORMICATION [None]
  - HEART RATE INCREASED [None]
  - HYPOKALAEMIA [None]
  - MYALGIA [None]
  - OLIGURIA [None]
  - PRURITUS [None]
  - SYNCOPE [None]
  - TREMOR [None]
